FAERS Safety Report 24138988 (Version 1)
Quarter: 2024Q3

REPORT INFORMATION
  Report Type: Report from Study
  Country: US (occurrence: US)
  Receive Date: 20240726
  Receipt Date: 20240726
  Transmission Date: 20241017
  Serious: Yes (Hospitalization, Other)
  Sender: ABBVIE
  Company Number: US-ABBVIE-5850602

PATIENT
  Sex: Male

DRUGS (2)
  1. RINVOQ [Suspect]
     Active Substance: UPADACITINIB
     Indication: Rheumatoid arthritis
     Dosage: FORM STRENGTH - 15MG?ER
     Route: 048
     Dates: start: 202312, end: 20240410
  2. RINVOQ [Suspect]
     Active Substance: UPADACITINIB
     Indication: Rheumatoid arthritis
     Dosage: FORM STRENGTH - 15MG?ER
     Route: 048
     Dates: start: 20240501

REACTIONS (3)
  - Spinal column injury [Unknown]
  - Osteoporosis [Unknown]
  - Fall [Unknown]
